APPROVED DRUG PRODUCT: LORATADINE
Active Ingredient: LORATADINE
Strength: 10MG
Dosage Form/Route: CAPSULE;ORAL
Application: A206214 | Product #001
Applicant: MARKSANS PHARMA LTD
Approved: Sep 23, 2016 | RLD: No | RS: No | Type: OTC